FAERS Safety Report 5445367-0 (Version None)
Quarter: 2007Q3

REPORT INFORMATION
  Report Type: 
  Country: None (occurrence: None)
  Receive Date: 20070906
  Receipt Date: 20070529
  Transmission Date: 20080115
  Serious: No
  Sender: FDA-Public Use
  Company Number: A0653180A

PATIENT
  Age: 82 Year
  Sex: Male

DRUGS (2)
  1. REQUIP [Suspect]
     Indication: DRUG USE FOR UNKNOWN INDICATION
     Dosage: .5MGK PER DAY
     Route: 048
     Dates: start: 20061201
  2. MULTIPLE MEDICATIONS [Concomitant]

REACTIONS (1)
  - BLEPHAROSPASM [None]
